FAERS Safety Report 9285034 (Version 3)
Quarter: 2013Q2

REPORT INFORMATION
  Report Type: Spontaneous
  Country: US (occurrence: US)
  Receive Date: 20130513
  Receipt Date: 20130529
  Transmission Date: 20140414
  Serious: Yes (Other)
  Sender: FDA-Public Use
  Company Number: US-AMGEN-USASP2013032808

PATIENT
  Age: 81 Year
  Sex: Female
  Weight: 96.6 kg

DRUGS (1)
  1. NPLATE [Suspect]
     Indication: THROMBOCYTOPENIA
     Dosage: 180 MUG, QWK
     Route: 058
     Dates: start: 20121101, end: 20130501

REACTIONS (7)
  - Platelet count decreased [Unknown]
  - Skin discolouration [Unknown]
  - Contusion [Unknown]
  - Feeling hot [Unknown]
  - Neuralgia [Recovering/Resolving]
  - Erythema [Recovering/Resolving]
  - Herpes zoster [Unknown]
